FAERS Safety Report 8370705-9 (Version None)
Quarter: 2012Q2

REPORT INFORMATION
  Report Type: 
  Country: None (occurrence: None)
  Receive Date: 20120518
  Receipt Date: 20120510
  Transmission Date: 20120825
  Serious: Yes (Hospitalization, Other)
  Sender: FDA-Public Use
  Company Number: JP-B.I. PHARMACEUTICALS,INC./RIDGEFIELD-2012-BP-03501NB

PATIENT
  Sex: Male
  Weight: 75.3 kg

DRUGS (11)
  1. PRADAXA [Suspect]
     Indication: ATRIAL FIBRILLATION
     Dosage: 220 MG
     Route: 048
     Dates: start: 20110428
  2. ZONISAMIDE [Concomitant]
     Indication: EPILEPSY
     Dosage: 200 MG
     Route: 048
     Dates: start: 20110125
  3. GEBEN [Concomitant]
     Indication: BLISTER
     Route: 062
     Dates: start: 20120124
  4. GRAMALIL [Concomitant]
     Indication: CEREBRAL INFARCTION
     Dosage: 25 MG
     Route: 048
     Dates: start: 20110512
  5. HIRUDOID [Concomitant]
     Route: 065
     Dates: end: 20120323
  6. DIOVAN [Concomitant]
     Dosage: 40 MG
     Route: 048
  7. RISPERDAL [Concomitant]
     Route: 065
  8. LOSARTAN POTASSIUM [Concomitant]
     Indication: HYPERTENSION
     Dosage: 25 MG
     Route: 048
  9. RISPERIDONE [Concomitant]
     Indication: RESTLESSNESS
     Route: 048
     Dates: start: 20110421
  10. ZYPREXA [Concomitant]
     Indication: CEREBRAL INFARCTION
     Dosage: 2.5 MG
     Route: 048
     Dates: start: 20111208
  11. FAMOTIDINE [Concomitant]
     Indication: HAEMORRHAGE PROPHYLAXIS
     Route: 048

REACTIONS (11)
  - BLOOD BLISTER [None]
  - VASCULAR INSUFFICIENCY [None]
  - FROSTBITE [None]
  - THERMAL BURN [None]
  - OEDEMA PERIPHERAL [None]
  - DYSPHAGIA [None]
  - SEPSIS [None]
  - CYANOSIS [None]
  - HAEMORRHAGE [None]
  - LACERATION [None]
  - SKIN NECROSIS [None]
